FAERS Safety Report 5609868-4 (Version None)
Quarter: 2008Q1

REPORT INFORMATION
  Report Type: 
  Country: None (occurrence: None)
  Receive Date: 20080129
  Receipt Date: 20080117
  Transmission Date: 20080703
  Serious: Yes (Hospitalization)
  Sender: FDA-Public Use
  Company Number: 2007BI024195

PATIENT
  Age: 44 Year
  Sex: Female
  Weight: 45.3597 kg

DRUGS (1)
  1. AVONEX [Suspect]
     Indication: MULTIPLE SCLEROSIS
     Dosage: 7.5 UG;QW;IM
     Route: 030
     Dates: start: 20071005

REACTIONS (3)
  - BIPOLAR I DISORDER [None]
  - DEPRESSION [None]
  - INFLUENZA LIKE ILLNESS [None]
